FAERS Safety Report 11786043 (Version 2)
Quarter: 2015Q4

REPORT INFORMATION
  Report Type: Spontaneous
  Country: AR (occurrence: AR)
  Receive Date: 20151130
  Receipt Date: 20151228
  Transmission Date: 20160305
  Serious: Yes (Other)
  Sender: FDA-Public Use
  Company Number: AR-PFIZER INC-2015400304

PATIENT
  Age: 56 Year
  Sex: Female

DRUGS (1)
  1. SUTENT [Suspect]
     Active Substance: SUNITINIB MALATE
     Indication: RENAL CANCER
     Dosage: 50 MG, CYCLIC (SCHEME 4/1)

REACTIONS (7)
  - Renal cancer [Unknown]
  - Disease progression [Unknown]
  - Demyelination [Recovering/Resolving]
  - Herpes zoster [Recovering/Resolving]
  - Organ failure [Unknown]
  - Neuropathy peripheral [Recovering/Resolving]
  - Nodule [Unknown]

NARRATIVE: CASE EVENT DATE: 2013
